FAERS Safety Report 9439243 (Version 4)
Quarter: 2013Q4

REPORT INFORMATION
  Report Type: Report from Study
  Country: FR (occurrence: FR)
  Receive Date: 20130804
  Receipt Date: 20131009
  Transmission Date: 20140711
  Serious: Yes (Disabling)
  Sender: FDA-Public Use
  Company Number: FR-ROCHE-1256729

PATIENT
  Age: 66 Year
  Sex: Male
  Weight: 73 kg

DRUGS (13)
  1. RITUXIMAB [Suspect]
     Indication: CHRONIC LYMPHOCYTIC LEUKAEMIA
     Route: 042
     Dates: start: 20120525
  2. CYCLOPHOSPHAMIDE [Suspect]
     Indication: CHRONIC LYMPHOCYTIC LEUKAEMIA
     Route: 042
     Dates: start: 20120525
  3. DOXORUBICIN [Suspect]
     Indication: CHRONIC LYMPHOCYTIC LEUKAEMIA
     Route: 042
     Dates: start: 20120525
  4. VINCRISTINE [Suspect]
     Indication: CHRONIC LYMPHOCYTIC LEUKAEMIA
     Route: 042
     Dates: start: 20120525
  5. PREDNISONE [Suspect]
     Indication: CHRONIC LYMPHOCYTIC LEUKAEMIA
     Route: 042
     Dates: start: 20120525
  6. ALLOPURINOL [Concomitant]
     Indication: HYPERURICAEMIA
     Route: 048
  7. ZELITREX [Concomitant]
     Route: 048
  8. INIPOMP [Concomitant]
     Indication: ABDOMINAL PAIN UPPER
     Route: 048
  9. TRIFLUCAN [Concomitant]
     Indication: CANDIDA INFECTION
     Route: 048
  10. BISOPROLOL [Concomitant]
     Indication: HYPERTENSION
     Route: 065
  11. DIFFU-K [Concomitant]
     Dosage: DAILY
     Route: 065
  12. VITAMIN D3 [Concomitant]
     Dosage: 500MG - 400 IU TWICE DAILY
     Route: 065
  13. DUPHALAC [Concomitant]

REACTIONS (2)
  - Febrile bone marrow aplasia [Recovered/Resolved]
  - Lung disorder [Not Recovered/Not Resolved]
